FAERS Safety Report 10387572 (Version 1)
Quarter: 2014Q3

REPORT INFORMATION
  Report Type: Spontaneous
  Country: US (occurrence: None)
  Receive Date: 20140814
  Receipt Date: 20140814
  Transmission Date: 20150326
  Serious: No
  Sender: FDA-Public Use
  Company Number: None

PATIENT
  Age: 30 Year
  Sex: Male
  Weight: 79.38 kg

DRUGS (4)
  1. VINBLASTINE [Suspect]
     Active Substance: VINBLASTINE
  2. DACARBAZINE. [Suspect]
     Active Substance: DACARBAZINE
  3. ADRIAMYCIN [Suspect]
     Active Substance: DOXORUBICIN HYDROCHLORIDE
     Indication: HODGKIN^S DISEASE
     Dosage: EVERY OTHER WEEK  INTO A VEIN
     Route: 042
     Dates: start: 200906
  4. BLEOMYCIN [Suspect]
     Active Substance: BLEOMYCIN SULFATE

REACTIONS (2)
  - Cluster headache [None]
  - Migraine with aura [None]

NARRATIVE: CASE EVENT DATE: 20140807
